FAERS Safety Report 7688701-3 (Version None)
Quarter: 2011Q3

REPORT INFORMATION
  Report Type: 
  Country: None (occurrence: None)
  Receive Date: 20110817
  Receipt Date: 20110809
  Transmission Date: 20111222
  Serious: Yes (Death)
  Sender: FDA-Public Use
  Company Number: JP-GLAXOSMITHKLINE-B0689973A

PATIENT
  Sex: Male
  Weight: 66 kg

DRUGS (29)
  1. SELBEX [Concomitant]
     Dosage: 150MG PER DAY
     Dates: start: 20011228, end: 20020321
  2. URSO 250 [Concomitant]
     Dosage: 600MG PER DAY
     Route: 048
     Dates: start: 20020212, end: 20020321
  3. FUNGIZONE [Concomitant]
     Dosage: 12ML PER DAY
     Route: 048
     Dates: start: 20020212, end: 20020214
  4. ULCERLMIN [Concomitant]
     Dosage: 3G PER DAY
     Route: 048
     Dates: start: 20020214, end: 20020215
  5. FAMOTIDINE [Concomitant]
     Dosage: 20MG PER DAY
     Route: 048
     Dates: start: 20020215, end: 20020301
  6. CYCLOSPORINE [Concomitant]
     Indication: IMMUNOSUPPRESSION
     Dosage: 240MG PER DAY
     Route: 065
     Dates: start: 20020214, end: 20020301
  7. CEFACLOR [Concomitant]
     Route: 048
     Dates: start: 20020107, end: 20020110
  8. WINCEF [Concomitant]
     Dosage: 2G PER DAY
     Route: 042
     Dates: start: 20020221, end: 20020224
  9. MEROPENEM [Concomitant]
     Dosage: 1G PER DAY
     Route: 042
     Dates: start: 20020224, end: 20020225
  10. GLEEVEC [Concomitant]
     Dosage: 600MG PER DAY
     Route: 048
     Dates: start: 20020104, end: 20020207
  11. FOSMICIN-S [Concomitant]
     Dosage: 4G PER DAY
     Route: 042
     Dates: start: 20020310, end: 20020314
  12. DEPAKENE [Concomitant]
     Dosage: 1200MG PER DAY
     Route: 048
     Dates: start: 20020207, end: 20020214
  13. CEFOTIAM HYDROCHLORIDE [Concomitant]
     Dosage: 2G PER DAY
     Dates: start: 20020307, end: 20020310
  14. ALKERAN [Suspect]
     Indication: STEM CELL TRANSPLANT
     Dosage: 130MG PER DAY
     Route: 042
     Dates: start: 20020212, end: 20020213
  15. CYCLOSPORINE [Concomitant]
     Dosage: 450MG PER DAY
     Route: 065
     Dates: start: 20020316, end: 20020321
  16. GLEEVEC [Concomitant]
     Dosage: 400MG PER DAY
     Route: 048
     Dates: start: 20011228, end: 20020103
  17. NYSTATIN [Concomitant]
     Dosage: 3IU6 PER DAY
     Route: 048
     Dates: start: 20020208, end: 20020321
  18. BUSULFAN [Concomitant]
     Indication: STEM CELL TRANSPLANT
     Dosage: 70MG PER DAY
     Route: 048
     Dates: start: 20020208, end: 20020211
  19. KANAMYCIN [Concomitant]
     Dosage: 1500MG PER DAY
     Route: 048
     Dates: start: 20020208, end: 20020228
  20. ZOVIRAX [Concomitant]
     Dosage: 1000MG PER DAY
     Route: 048
     Dates: start: 20020208, end: 20020305
  21. CEFOTIAM HYDROCHLORIDE [Concomitant]
     Dosage: 1G PER DAY
     Dates: start: 20020220, end: 20020221
  22. FOSCAVIR [Concomitant]
     Dosage: 525MG PER DAY
     Route: 042
     Dates: start: 20020305, end: 20020310
  23. URSO 250 [Concomitant]
     Dosage: 300MG PER DAY
     Route: 048
     Dates: start: 20020208, end: 20020211
  24. POLYMYXIN B SULFATE [Concomitant]
     Dosage: 3IU6 PER DAY
     Route: 048
     Dates: start: 20020228, end: 20020307
  25. GLAKAY [Concomitant]
     Dosage: 45MG PER DAY
     Route: 048
     Dates: start: 20020311, end: 20020314
  26. CLINDAMYCIN HCL [Suspect]
     Indication: PRODUCT USED FOR UNKNOWN INDICATION
     Dosage: 1200MG PER DAY
     Route: 042
     Dates: start: 20020225, end: 20020304
  27. AZACTAM [Suspect]
     Indication: PRODUCT USED FOR UNKNOWN INDICATION
     Dosage: 4G PER DAY
     Dates: start: 20020225, end: 20020304
  28. PRIMPERAN TAB [Concomitant]
     Dosage: 10MG PER DAY
     Route: 048
     Dates: start: 20011228, end: 20020301
  29. FOSCAVIR [Concomitant]
     Dosage: 525MG PER DAY
     Route: 042
     Dates: start: 20020312, end: 20020321

REACTIONS (3)
  - SEPTIC EMBOLUS [None]
  - ARRHYTHMIA [None]
  - BRAIN STEM HAEMORRHAGE [None]
